FAERS Safety Report 12378249 (Version 1)
Quarter: 2016Q2

REPORT INFORMATION
  Report Type: Spontaneous
  Country: US (occurrence: US)
  Receive Date: 20160517
  Receipt Date: 20160517
  Transmission Date: 20160815
  Serious: No
  Sender: FDA-Public Use
  Company Number: US-JNJFOC-20160329227

PATIENT
  Sex: Male
  Weight: 99.79 kg

DRUGS (5)
  1. HYDROCODONE [Suspect]
     Active Substance: HYDROCODONE
     Indication: PAIN
     Route: 065
     Dates: start: 20160314
  2. TYLENOL REGULAR STRENGTH [Suspect]
     Active Substance: ACETAMINOPHEN
     Indication: HEADACHE
     Route: 048
     Dates: start: 20160314
  3. HYDROCODONE [Suspect]
     Active Substance: HYDROCODONE
     Indication: HEADACHE
     Route: 065
     Dates: start: 20160314
  4. HYDROCODONE [Suspect]
     Active Substance: HYDROCODONE
     Indication: FEELING ABNORMAL
     Route: 065
     Dates: start: 20160314
  5. HYDROCODONE [Suspect]
     Active Substance: HYDROCODONE
     Indication: ARTHRALGIA
     Route: 065
     Dates: start: 20160314

REACTIONS (1)
  - Therapeutic response unexpected [Unknown]
